FAERS Safety Report 25344262 (Version 2)
Quarter: 2025Q3

REPORT INFORMATION
  Report Type: Spontaneous
  Country: US (occurrence: US)
  Receive Date: 20250521
  Receipt Date: 20250711
  Transmission Date: 20251020
  Serious: No
  Sender: PHARMING GROUP
  Company Number: US-PHARMING-PHAUS2025000650

PATIENT

DRUGS (2)
  1. RUCONEST [Suspect]
     Active Substance: CONESTAT ALFA
     Indication: Hereditary angioedema
     Route: 042
     Dates: start: 202501
  2. RUCONEST [Suspect]
     Active Substance: CONESTAT ALFA
     Indication: Angioedema

REACTIONS (4)
  - Condition aggravated [Unknown]
  - Weight increased [Unknown]
  - Underdose [Unknown]
  - Product use in unapproved indication [Unknown]
